FAERS Safety Report 4641055-9 (Version None)
Quarter: 2005Q2

REPORT INFORMATION
  Report Type: 
  Country: None (occurrence: None)
  Receive Date: 20050421
  Receipt Date: 20050412
  Transmission Date: 20051028
  Serious: Yes (Other)
  Sender: FDA-Public Use
  Company Number: CA-JNJFOC-20050402823

PATIENT
  Sex: Female
  Weight: 65 kg

DRUGS (7)
  1. REMICADE [Suspect]
     Indication: RHEUMATOID ARTHRITIS
     Route: 042
  2. METHOTREXATE [Concomitant]
  3. FOLIC ACID [Concomitant]
  4. FESO4 [Concomitant]
  5. PREMARIN [Concomitant]
  6. PROMETRIUM [Concomitant]
  7. PREVACID [Concomitant]

REACTIONS (1)
  - AUTOIMMUNE THYROIDITIS [None]
